FAERS Safety Report 10793280 (Version 1)
Quarter: 2015Q1

REPORT INFORMATION
  Report Type: Spontaneous
  Country: US (occurrence: None)
  Receive Date: 20150212
  Receipt Date: 20150212
  Transmission Date: 20150721
  Serious: Yes (Hospitalization)
  Sender: FDA-Public Use
  Company Number: None

PATIENT
  Age: 3 Year
  Sex: Male
  Weight: 14.1 kg

DRUGS (3)
  1. DEXAMETHASONE. [Suspect]
     Active Substance: DEXAMETHASONE
     Dates: end: 20150125
  2. ONCASPAR [Suspect]
     Active Substance: PEGASPARGASE
     Dates: end: 20150117
  3. CYTARABINE. [Suspect]
     Active Substance: CYTARABINE
     Dates: end: 20150114

REACTIONS (8)
  - Fungaemia [None]
  - Colitis [None]
  - Splenic infection fungal [None]
  - Kidney infection [None]
  - Enterocolitis [None]
  - Mucosal inflammation [None]
  - Fungal infection [None]
  - Clostridium test positive [None]

NARRATIVE: CASE EVENT DATE: 20150125
